FAERS Safety Report 24429587 (Version 2)
Quarter: 2025Q3

REPORT INFORMATION
  Report Type: Report from Study
  Country: US (occurrence: US)
  Receive Date: 20241012
  Receipt Date: 20250803
  Transmission Date: 20251020
  Serious: Yes (Other)
  Sender: ALEXION PHARMACEUTICALS
  Company Number: US-AstraZeneca-CH-00716529A

PATIENT
  Sex: Male

DRUGS (1)
  1. CALQUENCE [Suspect]
     Active Substance: ACALABRUTINIB
     Indication: B-cell small lymphocytic lymphoma
     Dosage: 100 MILLIGRAM, BID
     Dates: start: 202409

REACTIONS (6)
  - Cardiac failure congestive [Unknown]
  - Headache [Unknown]
  - Contusion [Unknown]
  - Dyspnoea [Unknown]
  - Gait disturbance [Unknown]
  - Asthenia [Unknown]
